FAERS Safety Report 9258036 (Version 1)
Quarter: 2013Q2

REPORT INFORMATION
  Report Type: Spontaneous
  Country: US (occurrence: None)
  Receive Date: 20130424
  Receipt Date: 20130424
  Transmission Date: 20140414
  Serious: Yes (Other)
  Sender: FDA-Public Use
  Company Number: None

PATIENT
  Age: 57 Year
  Sex: Female
  Weight: 65.5 kg

DRUGS (1)
  1. DEPAKOTE ER [Suspect]
     Dosage: 2 TABLETS
     Route: 048
     Dates: start: 20071214

REACTIONS (6)
  - Anxiety [None]
  - Headache [None]
  - Nausea [None]
  - Asthenia [None]
  - Affective disorder [None]
  - Condition aggravated [None]
